FAERS Safety Report 8116498-1 (Version None)
Quarter: 2012Q1

REPORT INFORMATION
  Report Type: 
  Country: None (occurrence: None)
  Receive Date: 20120206
  Receipt Date: 20120127
  Transmission Date: 20120608
  Serious: Yes (Other)
  Sender: FDA-Public Use
  Company Number: US-BAYER-201033157NA

PATIENT
  Age: 38 Year
  Sex: Female
  Weight: 63 kg

DRUGS (5)
  1. YAZ [Suspect]
     Indication: PREMENSTRUAL SYNDROME
  2. YAZ [Suspect]
     Indication: CONTRACEPTION
     Dosage: UNK
     Dates: start: 20081001, end: 20081201
  3. PROMETHAZINE [Concomitant]
     Dosage: 12.5 MG, UNK
     Route: 048
  4. PROPOXYPHENE HCL AND ACETAMINOPHEN [Concomitant]
     Dosage: UNK
     Route: 048
     Dates: start: 20081128
  5. PHENADOZ [Concomitant]
     Dosage: UNK
     Route: 048
     Dates: start: 20081128

REACTIONS (4)
  - ANXIETY [None]
  - DEPRESSION [None]
  - DEEP VEIN THROMBOSIS [None]
  - FEAR OF FALLING [None]
